FAERS Safety Report 6882275-2 (Version None)
Quarter: 2010Q3

REPORT INFORMATION
  Report Type: 
  Country: None (occurrence: None)
  Receive Date: 20100729
  Receipt Date: 20100722
  Transmission Date: 20110219
  Serious: Yes (Hospitalization)
  Sender: FDA-Public Use
  Company Number: FR-BRISTOL-MYERS SQUIBB COMPANY-15205925

PATIENT
  Age: 61 Year
  Sex: Male

DRUGS (2)
  1. COAPROVEL [Suspect]
     Indication: HYPERTENSION
     Dosage: 1DF=300 MG/12.5 MG
     Dates: end: 20100531
  2. NEXIUM [Suspect]
     Dates: end: 20100531

REACTIONS (1)
  - HYPONATRAEMIA [None]
